FAERS Safety Report 9319758 (Version 1)
Quarter: 2013Q2

REPORT INFORMATION
  Report Type: Spontaneous
  Country: US (occurrence: US)
  Receive Date: 20130530
  Receipt Date: 20130530
  Transmission Date: 20140414
  Serious: Yes (Hospitalization)
  Sender: FDA-Public Use
  Company Number: US-GLAXOSMITHKLINE-A1024961A

PATIENT
  Sex: Female

DRUGS (1)
  1. VOTRIENT [Suspect]
     Indication: PRODUCT USED FOR UNKNOWN INDICATION
     Dosage: 400MG PER DAY
     Route: 065
     Dates: start: 20130515

REACTIONS (5)
  - Cognitive disorder [Unknown]
  - Memory impairment [Unknown]
  - Blood pressure increased [Unknown]
  - Headache [Unknown]
  - Asthenia [Not Recovered/Not Resolved]
